FAERS Safety Report 4688456-0 (Version None)
Quarter: 2005Q2

REPORT INFORMATION
  Report Type: 
  Country: None (occurrence: None)
  Receive Date: 20050609
  Receipt Date: 20050609
  Transmission Date: 20051028
  Serious: Yes (Life-Threatening)
  Sender: FDA-Public Use
  Company Number: None

PATIENT
  Age: 67 Year
  Sex: Female
  Weight: 56.6996 kg

DRUGS (1)
  1. FOSAMAX [Suspect]
     Indication: OSTEOPOROSIS
     Dosage: 1 PILL PER WEEK
     Dates: start: 20050101, end: 20050501

REACTIONS (3)
  - DYSPHAGIA [None]
  - SWELLING FACE [None]
  - SWOLLEN TONGUE [None]
